FAERS Safety Report 9567374 (Version 1)
Quarter: 2013Q3

REPORT INFORMATION
  Report Type: Spontaneous
  Country: US (occurrence: US)
  Receive Date: 20130930
  Receipt Date: 20130930
  Transmission Date: 20140515
  Serious: No
  Sender: FDA-Public Use
  Company Number: US-AMGEN-USASP2012062759

PATIENT
  Age: 54 Year
  Sex: Male

DRUGS (4)
  1. ENBREL [Suspect]
     Indication: RHEUMATOID ARTHRITIS
     Dosage: 50 MG, QWK
     Dates: start: 20120706
  2. METHOTREXATE [Concomitant]
     Dosage: UNK
     Dates: end: 201208
  3. ACTOS [Concomitant]
     Dosage: UNK
  4. LEFLUNOMIDE [Concomitant]
     Dosage: UNK

REACTIONS (9)
  - Joint stiffness [Not Recovered/Not Resolved]
  - Arthralgia [Not Recovered/Not Resolved]
  - Pain in extremity [Not Recovered/Not Resolved]
  - Cough [Not Recovered/Not Resolved]
  - White blood cell count decreased [Not Recovered/Not Resolved]
  - Erythema [Not Recovered/Not Resolved]
  - Pain [Not Recovered/Not Resolved]
  - Blood glucose decreased [Recovered/Resolved]
  - Paraesthesia [Not Recovered/Not Resolved]
